FAERS Safety Report 9835513 (Version 2)
Quarter: 2014Q1

REPORT INFORMATION
  Report Type: Spontaneous
  Country: US (occurrence: US)
  Receive Date: 20140122
  Receipt Date: 20140122
  Transmission Date: 20141002
  Serious: No
  Sender: FDA-Public Use
  Company Number: US-BRISTOL-MYERS SQUIBB COMPANY-19712454

PATIENT
  Age: 84 Year
  Sex: Female
  Weight: 60.32 kg

DRUGS (4)
  1. ELIQUIS [Suspect]
     Indication: ATRIAL FIBRILLATION
     Dates: start: 2013
  2. FUROSEMIDE [Concomitant]
  3. DILTIAZEM HCL [Concomitant]
  4. METOPROLOL [Concomitant]

REACTIONS (1)
  - Haemorrhage [Recovered/Resolved]
